FAERS Safety Report 5938691-6 (Version None)
Quarter: 2008Q4

REPORT INFORMATION
  Report Type: 
  Country: None (occurrence: None)
  Receive Date: 20081103
  Receipt Date: 20081029
  Transmission Date: 20090506
  Serious: Yes (Hospitalization)
  Sender: FDA-Public Use
  Company Number: US-MERCK-0810USA05099

PATIENT
  Sex: Male

DRUGS (1)
  1. PROPECIA [Suspect]
     Route: 048

REACTIONS (3)
  - CHEST PAIN [None]
  - ERECTILE DYSFUNCTION [None]
  - SWELLING FACE [None]
